FAERS Safety Report 14569200 (Version 1)
Quarter: 2018Q1

REPORT INFORMATION
  Report Type: Spontaneous
  Country: US (occurrence: US)
  Receive Date: 20180219
  Receipt Date: 20180219
  Transmission Date: 20180509
  Serious: No
  Sender: FDA-Public Use
  Company Number: None

PATIENT
  Age: 64 Year
  Sex: Male
  Weight: 60.3 kg

DRUGS (5)
  1. INGREZZA [Suspect]
     Active Substance: VALBENAZINE
     Indication: TARDIVE DYSKINESIA
     Dates: start: 20171101, end: 20180101
  2. QUETIAPINE. [Concomitant]
     Active Substance: QUETIAPINE
  3. SERTRALINE [Concomitant]
     Active Substance: SERTRALINE HYDROCHLORIDE
  4. AMANTADINE. [Concomitant]
     Active Substance: AMANTADINE HYDROCHLORIDE
  5. BENZTROPINE. [Concomitant]
     Active Substance: BENZTROPINE

REACTIONS (4)
  - Muscle spasms [None]
  - Tachycardia [None]
  - Anal incontinence [None]
  - Drug dose omission [None]

NARRATIVE: CASE EVENT DATE: 20180101
